FAERS Safety Report 4921424-X (Version None)
Quarter: 2006Q1

REPORT INFORMATION
  Report Type: 
  Country: None (occurrence: None)
  Receive Date: 20060222
  Receipt Date: 20060222
  Transmission Date: 20060701
  Serious: No
  Sender: FDA-Public Use
  Company Number: None

PATIENT
  Age: 36 Year
  Sex: Female

DRUGS (2)
  1. AMBIEN [Suspect]
     Indication: MUSCLE SPASMS
     Dosage: 10 MG 1QHS FU 2 WEEKS
  2. AMBIEN [Suspect]
     Indication: PAIN IN EXTREMITY
     Dosage: 10 MG 1QHS FU 2 WEEKS

REACTIONS (3)
  - INSOMNIA [None]
  - MUSCLE SPASMS [None]
  - PAIN [None]
